FAERS Safety Report 8422078-0 (Version None)
Quarter: 2012Q2

REPORT INFORMATION
  Report Type: 
  Country: None (occurrence: None)
  Receive Date: 20120608
  Receipt Date: 20120604
  Transmission Date: 20120825
  Serious: Yes (Death)
  Sender: FDA-Public Use
  Company Number: CN-ROCHE-1075075

PATIENT

DRUGS (4)
  1. CYCLOPHOSPHAMIDE [Suspect]
     Indication: IMMUNOSUPPRESSION
  2. CELLCEPT [Suspect]
     Indication: IMMUNOSUPPRESSION
  3. PREDNISONE [Suspect]
     Indication: IMMUNOSUPPRESSION
  4. TACROLIMUS [Suspect]
     Indication: IMMUNOSUPPRESSION

REACTIONS (18)
  - URETERIC CANCER [None]
  - ANGIOSARCOMA [None]
  - RENAL CELL CARCINOMA [None]
  - GASTRIC CANCER [None]
  - LYMPHOMA [None]
  - MENINGIOMA MALIGNANT [None]
  - MALIGNANT NEOPLASM OF PLEURA [None]
  - PANCREATIC CARCINOMA [None]
  - HEPATIC NEOPLASM MALIGNANT [None]
  - MALIGNANT NEOPLASM OF RENAL PELVIS [None]
  - COLON CANCER [None]
  - HEPATIC CANCER METASTATIC [None]
  - METASTASIS [None]
  - BLADDER CANCER [None]
  - LUNG NEOPLASM MALIGNANT [None]
  - BREAST CANCER [None]
  - BLADDER TRANSITIONAL CELL CARCINOMA [None]
  - OESOPHAGEAL CARCINOMA [None]
